FAERS Safety Report 12099696 (Version 1)
Quarter: 2016Q1

REPORT INFORMATION
  Report Type: Spontaneous
  Country: US (occurrence: US)
  Receive Date: 20160222
  Receipt Date: 20160222
  Transmission Date: 20160526
  Serious: Yes (Other)
  Sender: FDA-Public Use
  Company Number: US-ASTRAZENECA-2016SE16819

PATIENT
  Age: 78 Year
  Sex: Female
  Weight: 80.3 kg

DRUGS (4)
  1. ARED [Concomitant]
     Indication: MACULAR DEGENERATION
     Route: 048
  2. BYETTA [Suspect]
     Active Substance: EXENATIDE
     Indication: TYPE 2 DIABETES MELLITUS
     Route: 058
     Dates: start: 2009, end: 2015
  3. BYDUREON [Suspect]
     Active Substance: EXENATIDE
     Indication: TYPE 2 DIABETES MELLITUS
     Route: 058
     Dates: start: 2015
  4. SYNTHROID [Concomitant]
     Active Substance: LEVOTHYROXINE SODIUM
     Indication: THYROID DISORDER

REACTIONS (9)
  - Macular degeneration [Unknown]
  - Fall [Unknown]
  - Head discomfort [Unknown]
  - Breast cancer recurrent [Unknown]
  - Pain [Unknown]
  - Post-traumatic neck syndrome [Unknown]
  - Tooth fracture [Unknown]
  - Hypokinesia [Unknown]
  - Neck pain [Unknown]

NARRATIVE: CASE EVENT DATE: 2011
